FAERS Safety Report 7821859-1 (Version None)
Quarter: 2011Q4

REPORT INFORMATION
  Report Type: 
  Country: None (occurrence: None)
  Receive Date: 20111018
  Receipt Date: 20110812
  Transmission Date: 20120403
  Serious: No
  Sender: FDA-Public Use
  Company Number: US-ASTRAZENECA-2011SE48602

PATIENT
  Sex: Female

DRUGS (2)
  1. STEROID MEDICATION [Concomitant]
  2. SYMBICORT [Suspect]
     Indication: ASTHMA
     Dosage: 160/4.5 MCG BID
     Route: 055
     Dates: start: 20100801

REACTIONS (5)
  - ROAD TRAFFIC ACCIDENT [None]
  - LIMB INJURY [None]
  - X-RAY OF PELVIS AND HIP ABNORMAL [None]
  - JOINT INJURY [None]
  - OEDEMA PERIPHERAL [None]
